FAERS Safety Report 6356055-0 (Version None)
Quarter: 2009Q3

REPORT INFORMATION
  Report Type: 
  Country: None (occurrence: None)
  Receive Date: 20090910
  Receipt Date: 20090910
  Transmission Date: 20100115
  Serious: Yes (Hospitalization, Other)
  Sender: FDA-Public Use
  Company Number: None

PATIENT
  Sex: Male
  Weight: 112.0385 kg

DRUGS (2)
  1. CLOZAPINE [Suspect]
     Indication: SCHIZOPHRENIA
  2. DDAVP [Suspect]
     Indication: ENURESIS
     Dosage: 0.2-0.4 MG AT BEDTIME PO, SEE HX
     Route: 048

REACTIONS (6)
  - CONFUSIONAL STATE [None]
  - DRUG EFFECT DECREASED [None]
  - DRUG INTERACTION [None]
  - ENURESIS [None]
  - HYPONATRAEMIA [None]
  - NO THERAPEUTIC RESPONSE [None]
